FAERS Safety Report 13096256 (Version 1)
Quarter: 2017Q1

REPORT INFORMATION
  Report Type: Spontaneous
  Country: US (occurrence: US)
  Receive Date: 20170109
  Receipt Date: 20170109
  Transmission Date: 20170428
  Serious: Yes (Hospitalization, Other)
  Sender: FDA-Public Use
  Company Number: US-JNJFOC-20161206421

PATIENT
  Age: 53 Year
  Sex: Male
  Weight: 107.05 kg

DRUGS (4)
  1. VICTOZA [Concomitant]
     Active Substance: LIRAGLUTIDE
     Indication: TYPE 2 DIABETES MELLITUS
  2. DARZALEX [Suspect]
     Active Substance: DARATUMUMAB
     Indication: PLASMA CELL MYELOMA
     Route: 042
     Dates: start: 20161128
  3. GLIPIZIDE. [Concomitant]
     Active Substance: GLIPIZIDE
     Indication: TYPE 2 DIABETES MELLITUS
  4. METFORMIN [Concomitant]
     Active Substance: METFORMIN HYDROCHLORIDE
     Indication: TYPE 2 DIABETES MELLITUS

REACTIONS (8)
  - Infusion related reaction [Unknown]
  - Urticaria [Recovered/Resolved]
  - Wheezing [Unknown]
  - Eye swelling [Unknown]
  - Dyspnoea [Unknown]
  - Cough [Unknown]
  - Blood pressure increased [Unknown]
  - Product preparation error [Unknown]

NARRATIVE: CASE EVENT DATE: 20161128
